FAERS Safety Report 16094555 (Version 1)
Quarter: 2019Q1

REPORT INFORMATION
  Report Type: Spontaneous
  Country: US (occurrence: US)
  Receive Date: 20190215
  Receipt Date: 20190215
  Transmission Date: 20190418
  Serious: No
  Sender: FDA-Public Use
  Company Number: None

PATIENT
  Age: 30 Year
  Sex: Female
  Weight: 54.43 kg

DRUGS (1)
  1. CBD WELLNESS CENTER DROPPER 1500MG [Suspect]
     Active Substance: CANNABIDIOL
     Indication: NEOPLASM MALIGNANT

REACTIONS (4)
  - Product complaint [None]
  - Malaise [None]
  - Diarrhoea [None]
  - Nausea [None]

NARRATIVE: CASE EVENT DATE: 20190131
